FAERS Safety Report 24988080 (Version 3)
Quarter: 2025Q2

REPORT INFORMATION
  Report Type: Spontaneous
  Country: NL (occurrence: NL)
  Receive Date: 20250220
  Receipt Date: 20250430
  Transmission Date: 20250717
  Serious: Yes (Hospitalization, Other)
  Sender: TAKEDA
  Company Number: NL-TAKEDA-2025TUS015874

PATIENT
  Age: 64 Year
  Sex: Male

DRUGS (6)
  1. ADZYNMA [Suspect]
     Active Substance: ADAMTS13, RECOMBINANT-KRHN
     Indication: Congenital thrombotic thrombocytopenic purpura
  2. ADZYNMA [Suspect]
     Active Substance: ADAMTS13, RECOMBINANT-KRHN
     Dosage: 40 INTERNATIONAL UNIT/KILOGRAM, Q3WEEKS
     Dates: start: 20241205
  3. ADZYNMA [Suspect]
     Active Substance: ADAMTS13, RECOMBINANT-KRHN
     Dosage: 40 INTERNATIONAL UNIT/KILOGRAM, Q3WEEKS
     Dates: start: 20241228
  4. ADZYNMA [Suspect]
     Active Substance: ADAMTS13, RECOMBINANT-KRHN
  5. ADZYNMA [Suspect]
     Active Substance: ADAMTS13, RECOMBINANT-KRHN
     Dosage: 40 INTERNATIONAL UNIT/KILOGRAM, Q3WEEKS
  6. ADZYNMA [Suspect]
     Active Substance: ADAMTS13, RECOMBINANT-KRHN
     Dosage: 40 INTERNATIONAL UNIT/KILOGRAM, Q2WEEKS

REACTIONS (3)
  - Cerebral infarction [Unknown]
  - Ischaemic stroke [Recovered/Resolved]
  - ADAMTS13 activity increased [Unknown]

NARRATIVE: CASE EVENT DATE: 20250102
